FAERS Safety Report 7547728-2 (Version None)
Quarter: 2011Q2

REPORT INFORMATION
  Report Type: 
  Country: None (occurrence: None)
  Receive Date: 20110614
  Receipt Date: 20110505
  Transmission Date: 20111010
  Serious: No
  Sender: FDA-Public Use
  Company Number: US-BAYER-2011-039933

PATIENT
  Age: 18 Year
  Sex: Female
  Weight: 58.05 kg

DRUGS (1)
  1. ALEVE (CAPLET) [Suspect]
     Dosage: 1 DF, ONCE, BOTTLE COUNT 50S
     Route: 048
     Dates: start: 20110504, end: 20110504

REACTIONS (3)
  - ODYNOPHAGIA [None]
  - FOREIGN BODY [None]
  - THROAT IRRITATION [None]
